FAERS Safety Report 14430842 (Version 9)
Quarter: 2018Q3

REPORT INFORMATION
  Report Type: Report from Study
  Country: None (occurrence: US)
  Receive Date: 20180124
  Receipt Date: 20180826
  Transmission Date: 20181010
  Serious: Yes (Hospitalization)
  Sender: FDA-Public Use
  Company Number: US-ABBVIE-17K-163-1869405-00

PATIENT
  Age: 73 Year
  Sex: Female

DRUGS (4)
  1. HUMIRA [Suspect]
     Active Substance: ADALIMUMAB
     Indication: RHEUMATOID ARTHRITIS
     Route: 058
     Dates: end: 2016
  2. HUMIRA [Suspect]
     Active Substance: ADALIMUMAB
     Route: 058
     Dates: start: 2018
  3. HUMIRA [Suspect]
     Active Substance: ADALIMUMAB
     Route: 058
     Dates: end: 201801
  4. HUMIRA [Suspect]
     Active Substance: ADALIMUMAB
     Route: 058
     Dates: start: 201801, end: 2018

REACTIONS (21)
  - Eructation [Not Recovered/Not Resolved]
  - Hiatus hernia [Unknown]
  - Wrong technique in product usage process [Unknown]
  - Spinal pain [Not Recovered/Not Resolved]
  - Urinary tract infection [Unknown]
  - Colitis [Recovered/Resolved]
  - Drug ineffective [Unknown]
  - Asthenia [Unknown]
  - Bursitis [Unknown]
  - Gingivitis [Recovered/Resolved]
  - Injection site bruising [Unknown]
  - Tooth infection [Recovered/Resolved]
  - Injection site pain [Unknown]
  - Animal scratch [Unknown]
  - Tendonitis [Unknown]
  - Incorrect dose administered [Unknown]
  - Urinary tract infection [Recovered/Resolved]
  - Spinal deformity [Unknown]
  - Urinary tract infection [Recovered/Resolved]
  - Intervertebral disc degeneration [Not Recovered/Not Resolved]
  - Influenza [Recovered/Resolved]

NARRATIVE: CASE EVENT DATE: 2016
